FAERS Safety Report 9805489 (Version 1)
Quarter: 2014Q1

REPORT INFORMATION
  Report Type: Spontaneous
  Country: US (occurrence: None)
  Receive Date: 20140107
  Receipt Date: 20140107
  Transmission Date: 20141002
  Serious: Yes (Other)
  Sender: FDA-Public Use
  Company Number: DAV-AE-MTX-13-67

PATIENT
  Age: 28 Year
  Sex: Male

DRUGS (3)
  1. METHOTREXATE [Suspect]
     Dosage: LOW DOSE
  2. USTEKINUMAB [Concomitant]
  3. PREDNISONE [Concomitant]

REACTIONS (4)
  - Hypersensitivity vasculitis [None]
  - Therapeutic response decreased [None]
  - Abdominal tenderness [None]
  - Microcytic anaemia [None]
